FAERS Safety Report 4503438-7 (Version None)
Quarter: 2004Q4

REPORT INFORMATION
  Report Type: 
  Country: None (occurrence: None)
  Receive Date: 20041117
  Receipt Date: 20041112
  Transmission Date: 20050328
  Serious: Yes (Hospitalization)
  Sender: FDA-Public Use
  Company Number: US-JNJFOC-20040708058

PATIENT
  Age: 35 Year
  Sex: Male

DRUGS (5)
  1. RISPERDAL CONSTA [Suspect]
     Route: 030
  2. RISPERDAL CONSTA [Suspect]
     Indication: SCHIZOPHRENIA
     Route: 030
  3. RISPERDAL [Suspect]
     Route: 049
  4. RISPERDAL [Suspect]
     Indication: SCHIZOPHRENIA
     Dosage: 2 MG IN AM  3 MG IN PM
     Route: 049
  5. SYNTHROID [Concomitant]
     Route: 049

REACTIONS (4)
  - AGGRESSION [None]
  - HALLUCINATION, AUDITORY [None]
  - MEMORY IMPAIRMENT [None]
  - SOMNOLENCE [None]
